FAERS Safety Report 9942189 (Version 1)
Quarter: 2014Q1

REPORT INFORMATION
  Report Type: Report from Study
  Country: US (occurrence: US)
  Receive Date: 20140303
  Receipt Date: 20140303
  Transmission Date: 20141002
  Serious: No
  Sender: FDA-Public Use
  Company Number: US-ABBVIE-13P-163-1042636-00

PATIENT
  Age: 49 Year
  Sex: Female
  Weight: 81.72 kg

DRUGS (9)
  1. HUMIRA [Suspect]
     Indication: UVEITIS
     Route: 058
     Dates: start: 20120813
  2. HUMIRA [Suspect]
     Indication: PSORIASIS
  3. HOMATROPINE [Concomitant]
     Indication: UVEITIS
     Dosage: EYE DROPS
  4. PREDNISONE ACETATE [Concomitant]
     Indication: UVEITIS
     Dosage: OPTHALMIC DROPS
  5. ADVAIR [Concomitant]
     Indication: ASTHMA
  6. THEOPHYLLINE ER [Concomitant]
     Indication: ASTHMA
  7. PULMICORT [Concomitant]
     Indication: ASTHMA
  8. PREDNISONE [Concomitant]
     Indication: ASTHMA
  9. SPIREVA [Concomitant]
     Indication: ASTHMA

REACTIONS (6)
  - Scleral oedema [Not Recovered/Not Resolved]
  - Asthma [Not Recovered/Not Resolved]
  - Off label use [Not Recovered/Not Resolved]
  - Psoriasis [Not Recovered/Not Resolved]
  - Therapeutic response unexpected [Not Recovered/Not Resolved]
  - Therapeutic response unexpected [Not Recovered/Not Resolved]
